FAERS Safety Report 14412165 (Version 1)
Quarter: 2018Q1

REPORT INFORMATION
  Report Type: Spontaneous
  Country: US (occurrence: US)
  Receive Date: 20180117
  Receipt Date: 20180117
  Transmission Date: 20180509
  Serious: Yes (Death, Life-Threatening, Hospitalization)
  Sender: FDA-Public Use
  Company Number: None

PATIENT
  Age: 66 Year
  Sex: Female
  Weight: 55 kg

DRUGS (2)
  1. TAXOL [Concomitant]
     Active Substance: PACLITAXEL
  2. HERCEPTIN [Suspect]
     Active Substance: TRASTUZUMAB
     Indication: BREAST CANCER
     Dosage: ?          OTHER FREQUENCY:ONCE;?
     Route: 041
     Dates: start: 20170824, end: 20170824

REACTIONS (4)
  - Oropharyngeal pain [None]
  - Cardiomyopathy [None]
  - Acute hepatic failure [None]
  - Body temperature increased [None]

NARRATIVE: CASE EVENT DATE: 20170825
